FAERS Safety Report 24642518 (Version 2)
Quarter: 2024Q4

REPORT INFORMATION
  Report Type: Spontaneous
  Country: US (occurrence: US)
  Receive Date: 20241120
  Receipt Date: 20241126
  Transmission Date: 20250115
  Serious: No
  Sender: BRISTOL-MYERS SQUIBB COMPANY
  Company Number: US-BRISTOL-MYERS SQUIBB COMPANY-2024-178629

PATIENT
  Age: 74 Year
  Sex: Male

DRUGS (3)
  1. ELIQUIS [Suspect]
     Active Substance: APIXABAN
     Indication: Product used for unknown indication
  2. COUMADIN [Suspect]
     Active Substance: WARFARIN SODIUM
     Indication: Product used for unknown indication
  3. BOSULIF [Suspect]
     Active Substance: BOSUTINIB MONOHYDRATE
     Indication: Product used for unknown indication
     Dosage: 3 TABLETS (300 MG) PO DAILY INDICATE NUMBER OF REFILLS: 11
     Route: 048

REACTIONS (1)
  - Drug hypersensitivity [Unknown]
